FAERS Safety Report 17214836 (Version 9)
Quarter: 2025Q2

REPORT INFORMATION
  Report Type: Spontaneous
  Country: ES (occurrence: ES)
  Receive Date: 20191230
  Receipt Date: 20250618
  Transmission Date: 20250717
  Serious: Yes (Other)
  Sender: MYLAN
  Company Number: None

PATIENT
  Age: 41 Year
  Sex: Male

DRUGS (148)
  1. RELPAX [Suspect]
     Active Substance: ELETRIPTAN HYDROBROMIDE
     Indication: Migraine
  2. RELPAX [Suspect]
     Active Substance: ELETRIPTAN HYDROBROMIDE
     Route: 065
  3. RELPAX [Suspect]
     Active Substance: ELETRIPTAN HYDROBROMIDE
     Route: 065
  4. RELPAX [Suspect]
     Active Substance: ELETRIPTAN HYDROBROMIDE
  5. IBUPROFEN [Suspect]
     Active Substance: IBUPROFEN
     Indication: Migraine
     Route: 065
  6. IBUPROFEN [Suspect]
     Active Substance: IBUPROFEN
  7. IBUPROFEN [Suspect]
     Active Substance: IBUPROFEN
  8. IBUPROFEN [Suspect]
     Active Substance: IBUPROFEN
     Route: 065
  9. IBUPROFEN [Suspect]
     Active Substance: IBUPROFEN
     Route: 065
  10. IBUPROFEN [Suspect]
     Active Substance: IBUPROFEN
  11. IBUPROFEN [Suspect]
     Active Substance: IBUPROFEN
  12. IBUPROFEN [Suspect]
     Active Substance: IBUPROFEN
     Route: 065
  13. PAROXETINE [Suspect]
     Active Substance: PAROXETINE
     Indication: Migraine
  14. PAROXETINE [Suspect]
     Active Substance: PAROXETINE
     Route: 065
  15. PAROXETINE [Suspect]
     Active Substance: PAROXETINE
     Route: 065
  16. PAROXETINE [Suspect]
     Active Substance: PAROXETINE
  17. LAMOTRIGINE [Suspect]
     Active Substance: LAMOTRIGINE
     Indication: Migraine
     Dosage: 50 MG, QD, (50 MG,1 IN 1 D)
     Route: 065
     Dates: start: 201110
  18. LAMOTRIGINE [Suspect]
     Active Substance: LAMOTRIGINE
     Dosage: 50 MG, QD, (50 MG,1 IN 1 D)
     Dates: start: 201110
  19. LAMOTRIGINE [Suspect]
     Active Substance: LAMOTRIGINE
     Dosage: 50 MG, QD, (50 MG,1 IN 1 D)
     Dates: start: 201110
  20. LAMOTRIGINE [Suspect]
     Active Substance: LAMOTRIGINE
     Dosage: 50 MG, QD, (50 MG,1 IN 1 D)
     Route: 065
     Dates: start: 201110
  21. LAMOTRIGINE [Suspect]
     Active Substance: LAMOTRIGINE
     Dosage: 50 MILLIGRAM, QD
     Route: 065
  22. LAMOTRIGINE [Suspect]
     Active Substance: LAMOTRIGINE
     Dosage: 50 MILLIGRAM, QD
  23. LAMOTRIGINE [Suspect]
     Active Substance: LAMOTRIGINE
     Dosage: 50 MILLIGRAM, QD
  24. LAMOTRIGINE [Suspect]
     Active Substance: LAMOTRIGINE
     Dosage: 50 MILLIGRAM, QD
     Route: 065
  25. RIZATRIPTAN [Suspect]
     Active Substance: RIZATRIPTAN
     Indication: Migraine
  26. RIZATRIPTAN [Suspect]
     Active Substance: RIZATRIPTAN
     Route: 065
  27. RIZATRIPTAN [Suspect]
     Active Substance: RIZATRIPTAN
     Route: 065
  28. RIZATRIPTAN [Suspect]
     Active Substance: RIZATRIPTAN
  29. ACETAMINOPHEN [Suspect]
     Active Substance: ACETAMINOPHEN
     Indication: Migraine
  30. ACETAMINOPHEN [Suspect]
     Active Substance: ACETAMINOPHEN
     Route: 065
  31. ACETAMINOPHEN [Suspect]
     Active Substance: ACETAMINOPHEN
     Route: 065
  32. ACETAMINOPHEN [Suspect]
     Active Substance: ACETAMINOPHEN
  33. TOPIRAMATE [Suspect]
     Active Substance: TOPIRAMATE
     Indication: Migraine
     Route: 065
  34. TOPIRAMATE [Suspect]
     Active Substance: TOPIRAMATE
  35. TOPIRAMATE [Suspect]
     Active Substance: TOPIRAMATE
  36. TOPIRAMATE [Suspect]
     Active Substance: TOPIRAMATE
     Route: 065
  37. TOPIRAMATE [Suspect]
     Active Substance: TOPIRAMATE
     Dosage: 25 MG, QD
     Route: 065
     Dates: start: 200906, end: 200906
  38. TOPIRAMATE [Suspect]
     Active Substance: TOPIRAMATE
     Dosage: 25 MG, QD
     Dates: start: 200906, end: 200906
  39. TOPIRAMATE [Suspect]
     Active Substance: TOPIRAMATE
     Dosage: 25 MG, QD
     Dates: start: 200906, end: 200906
  40. TOPIRAMATE [Suspect]
     Active Substance: TOPIRAMATE
     Dosage: 25 MG, QD
     Route: 065
     Dates: start: 200906, end: 200906
  41. TRYPTIZOL [Suspect]
     Active Substance: AMITRIPTYLINE HYDROCHLORIDE
     Indication: Migraine
     Dosage: 10 MG, QD
     Route: 065
     Dates: start: 201211
  42. TRYPTIZOL [Suspect]
     Active Substance: AMITRIPTYLINE HYDROCHLORIDE
     Dosage: 10 MG, QD
     Dates: start: 201211
  43. TRYPTIZOL [Suspect]
     Active Substance: AMITRIPTYLINE HYDROCHLORIDE
     Dosage: 10 MG, QD
     Dates: start: 201211
  44. TRYPTIZOL [Suspect]
     Active Substance: AMITRIPTYLINE HYDROCHLORIDE
     Dosage: 10 MG, QD
     Route: 065
     Dates: start: 201211
  45. TRYPTIZOL [Suspect]
     Active Substance: AMITRIPTYLINE HYDROCHLORIDE
     Dosage: 1 DOSAGE FORM, QD
     Route: 065
  46. TRYPTIZOL [Suspect]
     Active Substance: AMITRIPTYLINE HYDROCHLORIDE
     Dosage: 1 DOSAGE FORM, QD
  47. TRYPTIZOL [Suspect]
     Active Substance: AMITRIPTYLINE HYDROCHLORIDE
     Dosage: 1 DOSAGE FORM, QD
  48. TRYPTIZOL [Suspect]
     Active Substance: AMITRIPTYLINE HYDROCHLORIDE
     Dosage: 1 DOSAGE FORM, QD
     Route: 065
  49. TRYPTIZOL [Suspect]
     Active Substance: AMITRIPTYLINE HYDROCHLORIDE
     Dosage: 10 MG, QD (10 MG,1 IN 1 D)
     Route: 065
     Dates: start: 201110
  50. TRYPTIZOL [Suspect]
     Active Substance: AMITRIPTYLINE HYDROCHLORIDE
     Dosage: 10 MG, QD (10 MG,1 IN 1 D)
     Route: 065
     Dates: start: 201110
  51. TRYPTIZOL [Suspect]
     Active Substance: AMITRIPTYLINE HYDROCHLORIDE
     Dosage: 10 MG, QD (10 MG,1 IN 1 D)
     Dates: start: 201110
  52. TRYPTIZOL [Suspect]
     Active Substance: AMITRIPTYLINE HYDROCHLORIDE
     Dosage: 10 MG, QD (10 MG,1 IN 1 D)
     Dates: start: 201110
  53. BROMAZEPAM [Suspect]
     Active Substance: BROMAZEPAM
     Indication: Migraine
     Dosage: 3 MILLIGRAM, QD
  54. BROMAZEPAM [Suspect]
     Active Substance: BROMAZEPAM
     Dosage: 3 MILLIGRAM, QD
     Route: 065
  55. BROMAZEPAM [Suspect]
     Active Substance: BROMAZEPAM
     Dosage: 3 MILLIGRAM, QD
     Route: 065
  56. BROMAZEPAM [Suspect]
     Active Substance: BROMAZEPAM
     Dosage: 3 MILLIGRAM, QD
  57. VALPROATE SODIUM [Suspect]
     Active Substance: VALPROATE SODIUM
     Indication: Migraine
     Dosage: 500 MG, QD
     Dates: start: 201211
  58. VALPROATE SODIUM [Suspect]
     Active Substance: VALPROATE SODIUM
     Dosage: 500 MG, QD
     Route: 065
     Dates: start: 201211
  59. VALPROATE SODIUM [Suspect]
     Active Substance: VALPROATE SODIUM
     Dosage: 500 MG, QD
     Route: 065
     Dates: start: 201211
  60. VALPROATE SODIUM [Suspect]
     Active Substance: VALPROATE SODIUM
     Dosage: 500 MG, QD
     Dates: start: 201211
  61. BOTOX [Suspect]
     Active Substance: ONABOTULINUMTOXINA
     Indication: Migraine
     Route: 065
     Dates: start: 20130307, end: 20130307
  62. BOTOX [Suspect]
     Active Substance: ONABOTULINUMTOXINA
     Dates: start: 20130307, end: 20130307
  63. BOTOX [Suspect]
     Active Substance: ONABOTULINUMTOXINA
     Dates: start: 20130307, end: 20130307
  64. BOTOX [Suspect]
     Active Substance: ONABOTULINUMTOXINA
     Route: 065
     Dates: start: 20130307, end: 20130307
  65. BOTOX [Suspect]
     Active Substance: ONABOTULINUMTOXINA
  66. BOTOX [Suspect]
     Active Substance: ONABOTULINUMTOXINA
  67. BOTOX [Suspect]
     Active Substance: ONABOTULINUMTOXINA
     Route: 065
  68. BOTOX [Suspect]
     Active Substance: ONABOTULINUMTOXINA
     Route: 065
  69. BOTOX [Suspect]
     Active Substance: ONABOTULINUMTOXINA
     Route: 065
  70. BOTOX [Suspect]
     Active Substance: ONABOTULINUMTOXINA
     Route: 065
  71. BOTOX [Suspect]
     Active Substance: ONABOTULINUMTOXINA
  72. BOTOX [Suspect]
     Active Substance: ONABOTULINUMTOXINA
  73. BOTOX [Suspect]
     Active Substance: ONABOTULINUMTOXINA
  74. BOTOX [Suspect]
     Active Substance: ONABOTULINUMTOXINA
  75. BOTOX [Suspect]
     Active Substance: ONABOTULINUMTOXINA
     Route: 065
  76. BOTOX [Suspect]
     Active Substance: ONABOTULINUMTOXINA
     Route: 065
  77. VOLTAREN [Suspect]
     Active Substance: DICLOFENAC SODIUM
     Indication: Migraine
  78. VOLTAREN [Suspect]
     Active Substance: DICLOFENAC SODIUM
     Route: 065
  79. VOLTAREN [Suspect]
     Active Substance: DICLOFENAC SODIUM
     Route: 065
  80. VOLTAREN [Suspect]
     Active Substance: DICLOFENAC SODIUM
  81. XEOMIN [Suspect]
     Active Substance: INCOBOTULINUMTOXINA
     Indication: Migraine
     Route: 065
  82. XEOMIN [Suspect]
     Active Substance: INCOBOTULINUMTOXINA
  83. XEOMIN [Suspect]
     Active Substance: INCOBOTULINUMTOXINA
  84. XEOMIN [Suspect]
     Active Substance: INCOBOTULINUMTOXINA
     Route: 065
  85. XEOMIN [Suspect]
     Active Substance: INCOBOTULINUMTOXINA
     Dosage: 150 IU, UNK, 150 IU, QD
     Route: 065
     Dates: start: 20130307, end: 20130307
  86. XEOMIN [Suspect]
     Active Substance: INCOBOTULINUMTOXINA
     Dosage: 150 IU, UNK, 150 IU, QD
     Dates: start: 20130307, end: 20130307
  87. XEOMIN [Suspect]
     Active Substance: INCOBOTULINUMTOXINA
     Dosage: 150 IU, UNK, 150 IU, QD
     Dates: start: 20130307, end: 20130307
  88. XEOMIN [Suspect]
     Active Substance: INCOBOTULINUMTOXINA
     Dosage: 150 IU, UNK, 150 IU, QD
     Route: 065
     Dates: start: 20130307, end: 20130307
  89. ZOMIG [Suspect]
     Active Substance: ZOLMITRIPTAN
     Indication: Migraine
  90. ZOMIG [Suspect]
     Active Substance: ZOLMITRIPTAN
     Route: 065
  91. ZOMIG [Suspect]
     Active Substance: ZOLMITRIPTAN
     Route: 065
  92. ZOMIG [Suspect]
     Active Substance: ZOLMITRIPTAN
  93. MAXALT [Suspect]
     Active Substance: RIZATRIPTAN BENZOATE
     Indication: Migraine
  94. MAXALT [Suspect]
     Active Substance: RIZATRIPTAN BENZOATE
     Route: 065
  95. MAXALT [Suspect]
     Active Substance: RIZATRIPTAN BENZOATE
     Route: 065
  96. MAXALT [Suspect]
     Active Substance: RIZATRIPTAN BENZOATE
  97. PREDNISONE [Suspect]
     Active Substance: PREDNISONE
     Indication: Migraine
     Dosage: 60 MG, QD, (60 MG,1 IN 1 D)
  98. PREDNISONE [Suspect]
     Active Substance: PREDNISONE
     Dosage: 60 MG, QD, (60 MG,1 IN 1 D)
     Route: 065
  99. PREDNISONE [Suspect]
     Active Substance: PREDNISONE
     Dosage: 60 MG, QD, (60 MG,1 IN 1 D)
     Route: 065
  100. PREDNISONE [Suspect]
     Active Substance: PREDNISONE
     Dosage: 60 MG, QD, (60 MG,1 IN 1 D)
  101. FLUNARIZINE [Suspect]
     Active Substance: FLUNARIZINE
     Indication: Migraine
     Dosage: 5 MILLIGRAM, QD
  102. FLUNARIZINE [Suspect]
     Active Substance: FLUNARIZINE
     Dosage: 5 MILLIGRAM, QD
     Route: 065
  103. FLUNARIZINE [Suspect]
     Active Substance: FLUNARIZINE
     Dosage: 5 MILLIGRAM, QD
     Route: 065
  104. FLUNARIZINE [Suspect]
     Active Substance: FLUNARIZINE
     Dosage: 5 MILLIGRAM, QD
  105. METAMIZOLE [Suspect]
     Active Substance: METAMIZOLE
     Indication: Migraine
  106. METAMIZOLE [Suspect]
     Active Substance: METAMIZOLE
     Route: 065
  107. METAMIZOLE [Suspect]
     Active Substance: METAMIZOLE
     Route: 065
  108. METAMIZOLE [Suspect]
     Active Substance: METAMIZOLE
  109. METAMIZOLE SODIUM [Suspect]
     Active Substance: METAMIZOLE SODIUM
     Indication: Migraine
  110. METAMIZOLE SODIUM [Suspect]
     Active Substance: METAMIZOLE SODIUM
     Route: 065
  111. METAMIZOLE SODIUM [Suspect]
     Active Substance: METAMIZOLE SODIUM
     Route: 065
  112. METAMIZOLE SODIUM [Suspect]
     Active Substance: METAMIZOLE SODIUM
  113. AMITRIPTYLINE HYDROCHLORIDE [Suspect]
     Active Substance: AMITRIPTYLINE HYDROCHLORIDE
     Indication: Migraine
     Dosage: 10 MILLIGRAM, QD
     Dates: start: 201110
  114. AMITRIPTYLINE HYDROCHLORIDE [Suspect]
     Active Substance: AMITRIPTYLINE HYDROCHLORIDE
     Dosage: 10 MILLIGRAM, QD
     Route: 065
     Dates: start: 201110
  115. AMITRIPTYLINE HYDROCHLORIDE [Suspect]
     Active Substance: AMITRIPTYLINE HYDROCHLORIDE
     Dosage: 10 MILLIGRAM, QD
     Route: 065
     Dates: start: 201110
  116. AMITRIPTYLINE HYDROCHLORIDE [Suspect]
     Active Substance: AMITRIPTYLINE HYDROCHLORIDE
     Dosage: 10 MILLIGRAM, QD
     Dates: start: 201110
  117. BROMAZEPAM [Suspect]
     Active Substance: BROMAZEPAM
     Indication: Migraine
  118. BROMAZEPAM [Suspect]
     Active Substance: BROMAZEPAM
     Route: 065
  119. BROMAZEPAM [Suspect]
     Active Substance: BROMAZEPAM
     Route: 065
  120. BROMAZEPAM [Suspect]
     Active Substance: BROMAZEPAM
  121. ERGOTAMINE [Suspect]
     Active Substance: CAFFEINE\ERGOTAMINE\ERGOTAMINE TARTRATE
     Indication: Migraine
  122. ERGOTAMINE [Suspect]
     Active Substance: CAFFEINE\ERGOTAMINE\ERGOTAMINE TARTRATE
     Route: 065
  123. ERGOTAMINE [Suspect]
     Active Substance: CAFFEINE\ERGOTAMINE\ERGOTAMINE TARTRATE
     Route: 065
  124. ERGOTAMINE [Suspect]
     Active Substance: CAFFEINE\ERGOTAMINE\ERGOTAMINE TARTRATE
  125. BOTULINUM TOXIN TYPE A [Suspect]
     Active Substance: BOTULINUM TOXIN TYPE A
     Indication: Migraine
  126. BOTULINUM TOXIN TYPE A [Suspect]
     Active Substance: BOTULINUM TOXIN TYPE A
     Route: 065
  127. BOTULINUM TOXIN TYPE A [Suspect]
     Active Substance: BOTULINUM TOXIN TYPE A
     Route: 065
  128. BOTULINUM TOXIN TYPE A [Suspect]
     Active Substance: BOTULINUM TOXIN TYPE A
  129. TOPAMAX [Suspect]
     Active Substance: TOPIRAMATE
     Indication: Migraine
  130. TOPAMAX [Suspect]
     Active Substance: TOPIRAMATE
     Route: 065
  131. TOPAMAX [Suspect]
     Active Substance: TOPIRAMATE
     Route: 065
  132. TOPAMAX [Suspect]
     Active Substance: TOPIRAMATE
  133. ACETAMINOPHEN\BELLADONNA LEAF\CAFFEINE\ERGOTAMINE TARTRATE [Suspect]
     Active Substance: ACETAMINOPHEN\BELLADONNA LEAF\CAFFEINE\ERGOTAMINE TARTRATE
     Indication: Migraine
  134. ACETAMINOPHEN\BELLADONNA LEAF\CAFFEINE\ERGOTAMINE TARTRATE [Suspect]
     Active Substance: ACETAMINOPHEN\BELLADONNA LEAF\CAFFEINE\ERGOTAMINE TARTRATE
     Route: 065
  135. ACETAMINOPHEN\BELLADONNA LEAF\CAFFEINE\ERGOTAMINE TARTRATE [Suspect]
     Active Substance: ACETAMINOPHEN\BELLADONNA LEAF\CAFFEINE\ERGOTAMINE TARTRATE
     Route: 065
  136. ACETAMINOPHEN\BELLADONNA LEAF\CAFFEINE\ERGOTAMINE TARTRATE [Suspect]
     Active Substance: ACETAMINOPHEN\BELLADONNA LEAF\CAFFEINE\ERGOTAMINE TARTRATE
  137. VALPROATE SODIUM [Suspect]
     Active Substance: VALPROATE SODIUM
     Indication: Migraine
  138. VALPROATE SODIUM [Suspect]
     Active Substance: VALPROATE SODIUM
     Route: 065
  139. VALPROATE SODIUM [Suspect]
     Active Substance: VALPROATE SODIUM
     Route: 065
  140. VALPROATE SODIUM [Suspect]
     Active Substance: VALPROATE SODIUM
  141. ATROPA BELLADONNA\HOMEOPATHICS [Suspect]
     Active Substance: ATROPA BELLADONNA\HOMEOPATHICS
     Indication: Migraine
  142. ATROPA BELLADONNA\HOMEOPATHICS [Suspect]
     Active Substance: ATROPA BELLADONNA\HOMEOPATHICS
     Route: 065
  143. ATROPA BELLADONNA\HOMEOPATHICS [Suspect]
     Active Substance: ATROPA BELLADONNA\HOMEOPATHICS
     Route: 065
  144. ATROPA BELLADONNA\HOMEOPATHICS [Suspect]
     Active Substance: ATROPA BELLADONNA\HOMEOPATHICS
  145. FLUNARIZINE HYDROCHLORIDE [Suspect]
     Active Substance: FLUNARIZINE HYDROCHLORIDE
     Indication: Migraine
     Dosage: 5 MILLIGRAM, QD
  146. FLUNARIZINE HYDROCHLORIDE [Suspect]
     Active Substance: FLUNARIZINE HYDROCHLORIDE
     Dosage: 5 MILLIGRAM, QD
     Route: 065
  147. FLUNARIZINE HYDROCHLORIDE [Suspect]
     Active Substance: FLUNARIZINE HYDROCHLORIDE
     Dosage: 5 MILLIGRAM, QD
     Route: 065
  148. FLUNARIZINE HYDROCHLORIDE [Suspect]
     Active Substance: FLUNARIZINE HYDROCHLORIDE
     Dosage: 5 MILLIGRAM, QD

REACTIONS (7)
  - Paraesthesia [Unknown]
  - Insomnia [Unknown]
  - Drug abuse [Unknown]
  - Therapy partial responder [Unknown]
  - Product use in unapproved indication [Unknown]
  - Off label use [Unknown]
  - Intentional product misuse [Unknown]

NARRATIVE: CASE EVENT DATE: 20090201
